FAERS Safety Report 9981738 (Version 1)
Quarter: 2014Q1

REPORT INFORMATION
  Report Type: Spontaneous
  Country: US (occurrence: None)
  Receive Date: 20140127
  Receipt Date: 20140127
  Transmission Date: 20141002
  Serious: Yes (Hospitalization, Other)
  Sender: FDA-Public Use
  Company Number: 1192918

PATIENT
  Age: 61 Year
  Sex: Female
  Weight: 106.6 kg

DRUGS (3)
  1. RITUXAN [Suspect]
     Indication: RHEUMATOID ARTHRITIS
     Dosage: (1000 MG, 1 IN 1 16 WK), INTRAVENOUS (NOT OTHERWISE SPECIFIED)?
     Route: 042
     Dates: start: 20130124
  2. METHOTREXATE (METHOTREXATE) [Concomitant]
  3. FOLIC ACID (FOLIC ACID) [Concomitant]

REACTIONS (5)
  - Pharyngeal oedema [None]
  - Cough [None]
  - Infusion related reaction [None]
  - Nasopharyngitis [None]
  - Pruritus [None]
